FAERS Safety Report 6496721-X (Version None)
Quarter: 2009Q4

REPORT INFORMATION
  Report Type: 
  Country: None (occurrence: None)
  Receive Date: 20091211
  Receipt Date: 20091201
  Transmission Date: 20100525
  Serious: Yes (Hospitalization)
  Sender: FDA-Public Use
  Company Number: 20090569

PATIENT
  Age: 67 Year
  Sex: Male

DRUGS (2)
  1. METHYLENE BLUE INJECTION, USP (0301-10) 1% [Suspect]
     Indication: PARATHYROIDECTOMY
     Dosage: 1000 MCG INTRAVENOUS
     Route: 042
  2. DULOXETINE HYDROCHLORIDE [Suspect]
     Indication: DEPRESSION

REACTIONS (7)
  - DELAYED RECOVERY FROM ANAESTHESIA [None]
  - ENCEPHALOPATHY [None]
  - MUSCLE RIGIDITY [None]
  - NYSTAGMUS [None]
  - RESPIRATORY ACIDOSIS [None]
  - SEROTONIN SYNDROME [None]
  - URINE COLOUR ABNORMAL [None]
